FAERS Safety Report 8048896-9 (Version None)
Quarter: 2012Q1

REPORT INFORMATION
  Report Type: 
  Country: None (occurrence: None)
  Receive Date: 20120117
  Receipt Date: 20120105
  Transmission Date: 20120608
  Serious: Yes (Other)
  Sender: FDA-Public Use
  Company Number: US-ELI_LILLY_AND_COMPANY-US201108003466

PATIENT
  Sex: Female

DRUGS (16)
  1. LEVOTHYROXINE SODIUM [Concomitant]
  2. VITAMIN D [Concomitant]
  3. FORTEO [Suspect]
     Indication: OSTEOPOROSIS
     Dosage: 20 UG, QD
     Dates: start: 20110101
  4. INSULIN [Concomitant]
     Dosage: UNK, BID
  5. LISINOPRIL [Concomitant]
     Dosage: 10 MG, UNK
  6. GABAPENTIN [Concomitant]
     Dosage: 600 MG, EVERY 6 HRS
  7. BUSPIRONE [Concomitant]
     Dosage: 15 MG, BID
  8. CLONIDINE [Concomitant]
     Dosage: 0.1 MG, UNK
  9. GLIPIZIDE [Concomitant]
     Dosage: 10 MG, UNK
  10. FORTEO [Suspect]
     Dosage: 20 UG, QD
  11. LIPITOR [Concomitant]
     Dosage: 80 MG, UNK
  12. CLONAZEPAM [Concomitant]
     Dosage: 1 MG, TID
  13. LEVETIRACETAM [Concomitant]
     Dosage: 500 MG, UNK
  14. HYDROCODONE BITARTRATE [Concomitant]
  15. OMEPRAZOLE [Concomitant]
     Dosage: 40 MG, UNK
  16. SOMA [Concomitant]
     Dosage: 350 MG, PRN

REACTIONS (8)
  - CONVULSION [None]
  - FALL [None]
  - INJECTION SITE HAEMATOMA [None]
  - BURNING SENSATION [None]
  - BLOOD GLUCOSE FLUCTUATION [None]
  - INJECTION SITE PAIN [None]
  - INFLUENZA [None]
  - HYPERSENSITIVITY [None]
